FAERS Safety Report 7437859-X (Version None)
Quarter: 2011Q2

REPORT INFORMATION
  Report Type: 
  Country: None (occurrence: None)
  Receive Date: 20110426
  Receipt Date: 20110419
  Transmission Date: 20111010
  Serious: Yes (Hospitalization)
  Sender: FDA-Public Use
  Company Number: A0923586A

PATIENT
  Age: 85 Year
  Sex: Female

DRUGS (13)
  1. PRILOSEC [Concomitant]
  2. ALBUTEROL [Concomitant]
     Route: 055
  3. ALLEGRA [Concomitant]
  4. PROCHLORPERAZINE TAB [Concomitant]
  5. OXYGEN [Concomitant]
  6. ADVAIR DISKUS 100/50 [Suspect]
     Indication: CHRONIC OBSTRUCTIVE PULMONARY DISEASE
     Dosage: 1PUFF TWICE PER DAY
     Route: 055
  7. TRAMADOL [Concomitant]
  8. MINOXIDIL [Concomitant]
  9. LASIX [Concomitant]
  10. SPIRIVA [Concomitant]
  11. METOPROLOL [Concomitant]
  12. LEVOTHYROXINE SODIUM [Concomitant]
  13. LIDODERM [Concomitant]

REACTIONS (7)
  - DRUG INEFFECTIVE [None]
  - SKELETAL INJURY [None]
  - FALL [None]
  - BLOOD PRESSURE INCREASED [None]
  - RIB FRACTURE [None]
  - DYSPNOEA [None]
  - WOUND [None]
